FAERS Safety Report 7713482-4 (Version None)
Quarter: 2011Q3

REPORT INFORMATION
  Report Type: 
  Country: None (occurrence: None)
  Receive Date: 20110822
  Receipt Date: 20110805
  Transmission Date: 20111222
  Serious: Yes (Hospitalization)
  Sender: FDA-Public Use
  Company Number: 2011MA011390

PATIENT
  Age: 44 Year
  Sex: Male

DRUGS (4)
  1. PRAMIPEXOLE [Suspect]
     Indication: PARKINSON'S DISEASE
     Dosage: 1 MG;QID
     Dates: start: 20060101
  2. SELEGILINE [Suspect]
     Indication: PARKINSON'S DISEASE
     Dosage: 2.5 MG;QD
  3. AMANTADINE HCL [Suspect]
     Indication: PARKINSON'S DISEASE
     Dosage: 100 MG;QD
  4. LEVODOPA [Suspect]
     Indication: PARKINSON'S DISEASE
     Dosage: 1000 MG;QD
     Dates: start: 20060101

REACTIONS (8)
  - SELF-MEDICATION [None]
  - GAMBLING [None]
  - MARITAL PROBLEM [None]
  - OBSESSIVE THOUGHTS [None]
  - SOCIAL PROBLEM [None]
  - ABNORMAL BEHAVIOUR [None]
  - IMPULSE-CONTROL DISORDER [None]
  - TREATMENT NONCOMPLIANCE [None]
